FAERS Safety Report 12485785 (Version 3)
Quarter: 2016Q3

REPORT INFORMATION
  Report Type: Spontaneous
  Country: US (occurrence: US)
  Receive Date: 20160621
  Receipt Date: 20160708
  Transmission Date: 20161109
  Serious: Yes (Life-Threatening)
  Sender: FDA-Public Use
  Company Number: US-LUNDBECK-DKLU2015132

PATIENT
  Age: 75 Year
  Sex: Male

DRUGS (3)
  1. NORTHERA [Suspect]
     Active Substance: DROXIDOPA
     Indication: PRODUCT USED FOR UNKNOWN INDICATION
     Route: 065
     Dates: start: 20160526
  2. NORTHERA [Suspect]
     Active Substance: DROXIDOPA
     Dosage: SCHEDULE C TITRATION
     Route: 065
  3. VIAGRA [Suspect]
     Active Substance: SILDENAFIL CITRATE
     Indication: PRODUCT USED FOR UNKNOWN INDICATION
     Route: 065

REACTIONS (5)
  - Syncope [Unknown]
  - Drug ineffective [Not Recovered/Not Resolved]
  - Blood pressure decreased [Unknown]
  - Condition aggravated [Not Recovered/Not Resolved]
  - Hypotension [Unknown]

NARRATIVE: CASE EVENT DATE: 20160526
